FAERS Safety Report 17159474 (Version 1)
Quarter: 2019Q4

REPORT INFORMATION
  Report Type: Spontaneous
  Country: CN (occurrence: CN)
  Receive Date: 20191216
  Receipt Date: 20191216
  Transmission Date: 20200122
  Serious: Yes (Other)
  Sender: FDA-Public Use
  Company Number: CN-GLAXOSMITHKLINE-CN2019APC227237

PATIENT

DRUGS (2)
  1. DEXAMETHASONE SODIUM PHOSPHATE INJECTION [Concomitant]
     Active Substance: DEXAMETHASONE SODIUM PHOSPHATE
     Indication: CHEST DISCOMFORT
     Dosage: 1 ML, QD
     Route: 055
     Dates: start: 20191202, end: 20191202
  2. SALBUTAMOL [Suspect]
     Active Substance: ALBUTEROL
     Indication: CHEST DISCOMFORT
     Dosage: 5 MG, QD
     Route: 055
     Dates: start: 20191202, end: 20191202

REACTIONS (4)
  - Palpitations [Unknown]
  - Agitation [Unknown]
  - Supraventricular tachycardia [Unknown]
  - Electrocardiogram T wave inversion [Unknown]

NARRATIVE: CASE EVENT DATE: 20191202
